FAERS Safety Report 6599436-2 (Version None)
Quarter: 2010Q1

REPORT INFORMATION
  Report Type: 
  Country: None (occurrence: None)
  Receive Date: 20100216
  Receipt Date: 20100202
  Transmission Date: 20100710
  Serious: Yes (Other)
  Sender: FDA-Public Use
  Company Number: 2010AP000145

PATIENT
  Age: 33 Year
  Sex: Male

DRUGS (2)
  1. PAROXETINE HCL [Suspect]
     Dosage: 20 MG; QD 40 MG
     Dates: start: 20000911, end: 20010901
  2. PAROXETINE HCL [Suspect]
     Dosage: 20 MG; QD 40 MG
     Dates: start: 20020101

REACTIONS (5)
  - AGGRESSION [None]
  - OVERDOSE [None]
  - SUICIDAL IDEATION [None]
  - SUICIDE ATTEMPT [None]
  - WITHDRAWAL SYNDROME [None]
